FAERS Safety Report 10549561 (Version 1)
Quarter: 2014Q4

REPORT INFORMATION
  Report Type: Spontaneous
  Country: US (occurrence: US)
  Receive Date: 20141028
  Receipt Date: 20141028
  Transmission Date: 20150529
  Serious: No
  Sender: FDA-Public Use
  Company Number: US-GILEAD-2014-0120127

PATIENT
  Age: 80 Year
  Sex: Female

DRUGS (14)
  1. ASPIRIN                            /00002701/ [Concomitant]
     Active Substance: ASPIRIN
  2. GINKGO BILOBA [Concomitant]
     Active Substance: GINKGO
  3. OMEPRAZOLE. [Concomitant]
     Active Substance: OMEPRAZOLE
  4. DIPHENHYDRAMINE [Concomitant]
     Active Substance: DIPHENHYDRAMINE
  5. METOPROLOL [Concomitant]
     Active Substance: METOPROLOL
  6. SOVALDI [Suspect]
     Active Substance: SOFOSBUVIR
     Indication: HEPATITIS C
     Dosage: 400 MG, UNK
     Route: 048
     Dates: start: 20140801
  7. OLYSIO [Suspect]
     Active Substance: SIMEPREVIR
     Indication: HEPATITIS C
     Dosage: 150 MG, QD
     Dates: start: 20140801
  8. CHOLINE [Concomitant]
     Active Substance: CHOLINE
  9. DELESTROGEN [Concomitant]
     Active Substance: ESTRADIOL VALERATE
  10. GINSENG                            /01384001/ [Concomitant]
  11. FOSFATIDIL [Concomitant]
  12. S-ADENOSYLMETHIONINE SULFATE P-TOLUENESULFONATE [Concomitant]
     Active Substance: ADEMETIONINE SULFATE TOSILATE
  13. FUROSEMIDE. [Concomitant]
     Active Substance: FUROSEMIDE
  14. BIOTIN [Concomitant]
     Active Substance: BIOTIN

REACTIONS (3)
  - Off label use [Not Recovered/Not Resolved]
  - Burning sensation [Not Recovered/Not Resolved]
  - Hypoaesthesia [Not Recovered/Not Resolved]

NARRATIVE: CASE EVENT DATE: 20140801
